FAERS Safety Report 12224169 (Version 6)
Quarter: 2016Q3

REPORT INFORMATION
  Report Type: Spontaneous
  Country: JP (occurrence: JP)
  Receive Date: 20160330
  Receipt Date: 20160824
  Transmission Date: 20161109
  Serious: Yes (Death, Hospitalization, Other)
  Sender: FDA-Public Use
  Company Number: JP-ABBVIE-16K-087-1591951-00

PATIENT
  Age: 53 Year
  Sex: Male
  Weight: 70.6 kg

DRUGS (14)
  1. MIZORIBINE [Concomitant]
     Active Substance: MIZORIBINE
     Indication: LUPUS NEPHRITIS
  2. AMLODIPINE BESILATE [Concomitant]
     Active Substance: AMLODIPINE BESYLATE
     Indication: HYPERTENSION
     Route: 048
     Dates: start: 20160206
  3. HUMIRA [Suspect]
     Active Substance: ADALIMUMAB
     Indication: ANKYLOSING SPONDYLITIS
     Route: 058
     Dates: start: 20130227
  4. FEBUXOSTAT. [Concomitant]
     Active Substance: FEBUXOSTAT
     Indication: HYPERURICAEMIA
     Route: 048
     Dates: start: 20130703, end: 20160206
  5. HUMIRA [Suspect]
     Active Substance: ADALIMUMAB
     Route: 058
     Dates: start: 2015, end: 20160206
  6. LORNOXICAM [Concomitant]
     Active Substance: LORNOXICAM
     Indication: BACK PAIN
     Route: 048
     Dates: start: 20160206
  7. MIZORIBINE [Concomitant]
     Active Substance: MIZORIBINE
     Indication: ANKYLOSING SPONDYLITIS
     Dosage: 300 MG/WEEK
     Route: 048
     Dates: start: 20130703, end: 20160206
  8. REBAMIPIDE [Concomitant]
     Active Substance: REBAMIPIDE
     Indication: GASTRITIS
     Route: 048
     Dates: start: 20160206
  9. NIFEDIPINE. [Concomitant]
     Active Substance: NIFEDIPINE
     Indication: HYPERTENSION
     Route: 048
     Dates: start: 20160206
  10. ATORVASTATIN CALCIUM. [Concomitant]
     Active Substance: ATORVASTATIN CALCIUM
     Indication: HYPERLIPIDAEMIA
     Route: 048
     Dates: start: 20160206
  11. SODIUM FERROUS CITRATE [Concomitant]
     Active Substance: SODIUM FERROUS CITRATE
     Indication: ANAEMIA
     Route: 048
     Dates: start: 20160206
  12. LANSOPRAZOLE. [Concomitant]
     Active Substance: LANSOPRAZOLE
     Indication: GASTROOESOPHAGEAL REFLUX DISEASE
     Route: 048
     Dates: start: 20160206
  13. BETAXOLOL HYDROCHLORIDE. [Concomitant]
     Active Substance: BETAXOLOL HYDROCHLORIDE
     Indication: HYPERTENSION
     Route: 048
     Dates: start: 20160206
  14. EPERISONE HYDROCHLORIDE [Concomitant]
     Active Substance: EPERISONE HYDROCHLORIDE
     Indication: BACK PAIN
     Route: 048
     Dates: start: 20160206

REACTIONS (24)
  - Disseminated intravascular coagulation [Unknown]
  - Blood urea increased [Unknown]
  - Intra-abdominal fluid collection [Unknown]
  - Lumbar vertebral fracture [Unknown]
  - Intestinal perforation [Fatal]
  - White blood cell count increased [Unknown]
  - Blood alkaline phosphatase increased [Unknown]
  - Cardio-respiratory arrest [Unknown]
  - Hypokalaemia [Unknown]
  - Pneumonia bacterial [Recovered/Resolved]
  - Vomiting [Unknown]
  - Large intestinal ulcer [Unknown]
  - Pulmonary oedema [Unknown]
  - Blood lactate dehydrogenase increased [Unknown]
  - Thoracic vertebral fracture [Unknown]
  - Hypercapnia [Unknown]
  - Diarrhoea [Unknown]
  - Pancreatitis acute [Fatal]
  - Abdominal pain upper [Unknown]
  - C-reactive protein increased [Unknown]
  - Haematochezia [Unknown]
  - Pancreas infection [Fatal]
  - Septic shock [Not Recovered/Not Resolved]
  - Blood beta-D-glucan increased [Unknown]

NARRATIVE: CASE EVENT DATE: 20150513
